FAERS Safety Report 20139758 (Version 2)
Quarter: 2022Q2

REPORT INFORMATION
  Report Type: Report from Study
  Country: CO (occurrence: CO)
  Receive Date: 20211202
  Receipt Date: 20220527
  Transmission Date: 20220720
  Serious: Yes (Hospitalization, Disabling, Other)
  Sender: FDA-Public Use
  Company Number: CO-AMGEN-COLSL2021133284

PATIENT
  Age: 63 Year
  Sex: Male

DRUGS (2)
  1. XGEVA [Suspect]
     Active Substance: DENOSUMAB
     Indication: Prophylaxis
     Dosage: 120 MILLIGRAM, QMO
     Route: 058
     Dates: start: 20181030
  2. XGEVA [Suspect]
     Active Substance: DENOSUMAB
     Dosage: 120 MILLIGRAM, QMO
     Route: 058
     Dates: start: 20211027, end: 20220325

REACTIONS (12)
  - Pain [Recovering/Resolving]
  - Decreased appetite [Recovering/Resolving]
  - Pain in extremity [Not Recovered/Not Resolved]
  - Musculoskeletal pain [Not Recovered/Not Resolved]
  - Insomnia [Recovering/Resolving]
  - Mobility decreased [Recovering/Resolving]
  - Bedridden [Recovering/Resolving]
  - Bone pain [Not Recovered/Not Resolved]
  - Amnesia [Not Recovered/Not Resolved]
  - Gait inability [Recovering/Resolving]
  - Pruritus [Unknown]
  - Muscle spasms [Unknown]

NARRATIVE: CASE EVENT DATE: 20210101
